FAERS Safety Report 24679324 (Version 1)
Quarter: 2024Q4

REPORT INFORMATION
  Report Type: Spontaneous
  Country: US (occurrence: US)
  Receive Date: 20241129
  Receipt Date: 20241129
  Transmission Date: 20250115
  Serious: Yes (Hospitalization, Other)
  Sender: RANBAXY
  Company Number: US-SUN PHARMACEUTICAL INDUSTRIES LTD-2024R1-481157

PATIENT
  Age: 7 Decade
  Sex: Male
  Weight: 116.2 kg

DRUGS (1)
  1. ACETAMINOPHEN [Suspect]
     Active Substance: ACETAMINOPHEN
     Indication: Hypophagia
     Dosage: 1000 MILLIGRAM, EVERY 6HOURS
     Route: 065

REACTIONS (1)
  - Metabolic acidosis [Unknown]
